FAERS Safety Report 15709040 (Version 1)
Quarter: 2018Q4

REPORT INFORMATION
  Report Type: Report from Study
  Country: BR (occurrence: BR)
  Receive Date: 20181211
  Receipt Date: 20181211
  Transmission Date: 20190205
  Serious: Yes (Other)
  Sender: FDA-Public Use
  Company Number: BR-ROCHE-2225405

PATIENT
  Age: 69 Year
  Sex: Male
  Weight: 75 kg

DRUGS (1)
  1. BEVACIZUMAB. [Suspect]
     Active Substance: BEVACIZUMAB
     Indication: COLORECTAL CANCER
     Route: 065

REACTIONS (3)
  - Drug ineffective [Unknown]
  - Neoplasm progression [Unknown]
  - Disease progression [Unknown]
